FAERS Safety Report 7235233-2 (Version None)
Quarter: 2011Q1

REPORT INFORMATION
  Report Type: 
  Country: None (occurrence: None)
  Receive Date: 20110120
  Receipt Date: 20110112
  Transmission Date: 20110831
  Serious: Yes (Hospitalization)
  Sender: FDA-Public Use
  Company Number: FR-KINGPHARMUSA00001-K201100061

PATIENT
  Age: 67 Year
  Sex: Male

DRUGS (5)
  1. ALTACE [Suspect]
     Indication: HYPERTENSION
     Dosage: UNK
     Route: 048
     Dates: start: 20090101, end: 20101110
  2. HYDROCHLOROTHIAZIDE [Suspect]
     Indication: HYPERTENSION
     Dosage: UNK
     Route: 048
     Dates: start: 20090101, end: 20101110
  3. ACETYLSALICYLIC ACID [Suspect]
     Indication: ISCHAEMIC CARDIOMYOPATHY
     Dosage: 100 MG, QD
     Route: 048
     Dates: start: 20090101, end: 20101110
  4. ROSUVASTATIN [Concomitant]
     Dosage: 1 UNK, QD
     Route: 048
  5. CIPROFLOXACIN [Concomitant]
     Dosage: 1000 MG, QD
     Route: 048

REACTIONS (2)
  - HYPONATRAEMIA [None]
  - HAEMATEMESIS [None]
